FAERS Safety Report 24339083 (Version 1)
Quarter: 2024Q3

REPORT INFORMATION
  Report Type: Spontaneous
  Country: US (occurrence: US)
  Receive Date: 20240919
  Receipt Date: 20240919
  Transmission Date: 20241017
  Serious: No
  Sender: VERO BIOTECH
  Company Number: US-VEROBIOTECH-2024USVEROSPO00225

PATIENT
  Sex: Male

DRUGS (1)
  1. GENOSYL [Suspect]
     Active Substance: NITRIC OXIDE
     Indication: Product used for unknown indication
     Dosage: 20 PPM

REACTIONS (2)
  - Underdose [Unknown]
  - Undersensing [Unknown]
